FAERS Safety Report 4802460-0 (Version None)
Quarter: 2005Q4

REPORT INFORMATION
  Report Type: 
  Country: None (occurrence: None)
  Receive Date: 20051014
  Receipt Date: 20041117
  Transmission Date: 20060501
  Serious: Yes (Other)
  Sender: FDA-Public Use
  Company Number: 2004095229

PATIENT
  Age: 56 Year
  Sex: Female

DRUGS (6)
  1. NEURONTIN [Suspect]
     Indication: ILL-DEFINED DISORDER
     Dosage: 3600 MG
  2. ACETYLSALICYLC ACID (ACETYLSALICYLIC ACID) [Suspect]
     Indication: ILL-DEFINED DISORDER
  3. CLONAZEPAM [Suspect]
     Indication: ILL-DEFINED DISORDER
  4. METOPROLOL TARTRATE [Suspect]
     Indication: ILL-DEFINED DISORDER
  5. METHADONE HCL [Suspect]
     Indication: ILL-DEFINED DISORDER
  6. PANTOPRAZOLE SODIUM [Suspect]
     Indication: ILL-DEFINED DISORDER

REACTIONS (9)
  - BALANCE DISORDER [None]
  - CARDIOVASCULAR DISORDER [None]
  - DIFFICULTY IN WALKING [None]
  - GASTROOESOPHAGEAL REFLUX DISEASE [None]
  - HEART RATE INCREASED [None]
  - PAIN [None]
  - PALPITATIONS [None]
  - THROMBOSIS [None]
  - VISUAL ACUITY REDUCED [None]
